FAERS Safety Report 6066545-6 (Version None)
Quarter: 2009Q1

REPORT INFORMATION
  Report Type: 
  Country: None (occurrence: None)
  Receive Date: 20090205
  Receipt Date: 20090129
  Transmission Date: 20090719
  Serious: Yes (Hospitalization)
  Sender: FDA-Public Use
  Company Number: A0745296A

PATIENT
  Age: 51 Year
  Sex: Male

DRUGS (7)
  1. AVANDIA [Suspect]
     Indication: DIABETES MELLITUS
     Dosage: 4MG TWICE PER DAY
     Route: 048
     Dates: start: 20020101, end: 20070501
  2. METFORMIN [Concomitant]
  3. AMARYL [Concomitant]
  4. VIAGRA [Concomitant]
  5. LEVITRA [Concomitant]
  6. OMEPRAZOLE [Concomitant]
  7. PROMETHAZINE [Concomitant]

REACTIONS (4)
  - ATRIOVENTRICULAR BLOCK [None]
  - HYPERTENSION [None]
  - INJURY [None]
  - PAIN [None]
